FAERS Safety Report 13738469 (Version 2)
Quarter: 2018Q2

REPORT INFORMATION
  Report Type: Report from Study
  Country: US (occurrence: US)
  Receive Date: 20170710
  Receipt Date: 20180627
  Transmission Date: 20180711
  Serious: No
  Sender: FDA-Public Use
  Company Number: US-SAOL THERAPEUTICS-2017SAO00086

PATIENT
  Age: 42 Year
  Sex: Male
  Weight: 86.17 kg

DRUGS (1)
  1. BACLOFEN. [Suspect]
     Active Substance: BACLOFEN
     Dosage: 566.2 ?G, \DAY
     Dates: start: 20160630

REACTIONS (3)
  - Haematocrit increased [Unknown]
  - Implant site ulcer [Recovered/Resolved]
  - Red blood cell count decreased [Unknown]

NARRATIVE: CASE EVENT DATE: 20161130
